FAERS Safety Report 13058768 (Version 1)
Quarter: 2016Q4

REPORT INFORMATION
  Report Type: Spontaneous
  Country: US (occurrence: US)
  Receive Date: 20161223
  Receipt Date: 20161223
  Transmission Date: 20170207
  Serious: Yes (Other)
  Sender: FDA-Public Use
  Company Number: US-WEST-WARD PHARMACEUTICALS CORP.-US-H14001-16-03048

PATIENT
  Age: 43 Year
  Sex: Female

DRUGS (16)
  1. VINCRISTINE [Suspect]
     Active Substance: VINCRISTINE
     Indication: ANAPLASTIC LARGE-CELL LYMPHOMA
     Route: 065
  2. MESNA. [Concomitant]
     Active Substance: MESNA
     Indication: ANAPLASTIC LARGE-CELL LYMPHOMA
     Route: 041
  3. DEXAMETHASONE. [Suspect]
     Active Substance: DEXAMETHASONE
     Indication: ANAPLASTIC LARGE-CELL LYMPHOMA
     Route: 065
  4. LEUCOVORIN. [Concomitant]
     Active Substance: LEUCOVORIN
     Indication: ANAPLASTIC LARGE-CELL LYMPHOMA
     Route: 042
  5. DOXORUBICIN [Suspect]
     Active Substance: DOXORUBICIN
     Indication: ANAPLASTIC LARGE-CELL LYMPHOMA
     Route: 042
  6. METHOTREXATE. [Concomitant]
     Active Substance: METHOTREXATE
     Route: 065
  7. BRENTUXIMAB VEDOTIN [Concomitant]
     Active Substance: BRENTUXIMAB VEDOTIN
     Indication: ANAPLASTIC LARGE-CELL LYMPHOMA
     Route: 042
  8. BRENTUXIMAB VEDOTIN [Concomitant]
     Active Substance: BRENTUXIMAB VEDOTIN
     Route: 042
  9. CYCLOPHOSPHAMIDE. [Suspect]
     Active Substance: CYCLOPHOSPHAMIDE
     Indication: ANAPLASTIC LARGE-CELL LYMPHOMA
     Route: 042
  10. METHYLPREDNISOLONE. [Suspect]
     Active Substance: METHYLPREDNISOLONE
     Indication: ANAPLASTIC LARGE-CELL LYMPHOMA
  11. CYTARABINE. [Concomitant]
     Active Substance: CYTARABINE
     Route: 042
  12. LEUCOVORIN. [Concomitant]
     Active Substance: LEUCOVORIN
     Route: 042
  13. METHOTREXATE. [Concomitant]
     Active Substance: METHOTREXATE
     Indication: ANAPLASTIC LARGE-CELL LYMPHOMA
     Route: 037
  14. CYTARABINE. [Concomitant]
     Active Substance: CYTARABINE
     Indication: ANAPLASTIC LARGE-CELL LYMPHOMA
     Route: 037
  15. DEXAMETHASONE. [Suspect]
     Active Substance: DEXAMETHASONE
     Route: 048
  16. METHOTREXATE. [Concomitant]
     Active Substance: METHOTREXATE
     Route: 037

REACTIONS (4)
  - Anaemia [Unknown]
  - Thrombocytopenia [Unknown]
  - Febrile neutropenia [Unknown]
  - Neuropathy peripheral [Unknown]
